FAERS Safety Report 4429247-5 (Version None)
Quarter: 2004Q3

REPORT INFORMATION
  Report Type: 
  Country: None (occurrence: None)
  Receive Date: 20040817
  Receipt Date: 20040817
  Transmission Date: 20050211
  Serious: Yes (Hospitalization)
  Sender: FDA-Public Use
  Company Number: None

PATIENT
  Age: 42 Year
  Sex: Female
  Weight: 81.6475 kg

DRUGS (1)
  1. ZONEGRAN [Suspect]
     Indication: BIPOLAR DISORDER
     Dosage: 100 MG ONCE ORAL
     Route: 048
     Dates: start: 20040701, end: 20040803

REACTIONS (8)
  - ABDOMINAL PAIN UPPER [None]
  - ALANINE AMINOTRANSFERASE INCREASED [None]
  - ASPARTATE AMINOTRANSFERASE INCREASED [None]
  - BLOOD ALKALINE PHOSPHATASE INCREASED [None]
  - DRUG TOXICITY [None]
  - EOSINOPHILIA [None]
  - HYPERBILIRUBINAEMIA [None]
  - NAUSEA [None]
